FAERS Safety Report 5734624-6 (Version None)
Quarter: 2008Q2

REPORT INFORMATION
  Report Type: 
  Country: None (occurrence: None)
  Receive Date: 20080512
  Receipt Date: 20080505
  Transmission Date: 20081010
  Serious: Yes (Other)
  Sender: FDA-Public Use
  Company Number: PHHY2008PT07203

PATIENT
  Age: 61 Year
  Sex: Female

DRUGS (2)
  1. CHEMOTHERAPEUTICS NOS [Concomitant]
  2. ZOMETA [Suspect]
     Indication: BREAST NEOPLASM
     Route: 042
     Dates: start: 20070701, end: 20080101

REACTIONS (2)
  - ORAL DISORDER [None]
  - OSTEONECROSIS [None]
